FAERS Safety Report 7459965-6 (Version None)
Quarter: 2011Q2

REPORT INFORMATION
  Report Type: 
  Country: None (occurrence: None)
  Receive Date: 20110427
  Receipt Date: 20110418
  Transmission Date: 20111010
  Serious: Yes (Death, Hospitalization, Congenital Anomaly)
  Sender: FDA-Public Use
  Company Number: 11TR002277

PATIENT
  Age: 15 Day
  Sex: Female
  Weight: 3.2 kg

DRUGS (1)
  1. VALPROIC ACID [Suspect]
     Indication: PRODUCT USED FOR UNKNOWN INDICATION
     Dosage: 500, 250  MG, QD, INTRA-UTERINE
     Route: 015

REACTIONS (25)
  - RESPIRATORY FAILURE [None]
  - RESPIRATORY DISTRESS [None]
  - COARCTATION OF THE AORTA [None]
  - HYPOTONIA [None]
  - JOINT CONTRACTURE [None]
  - CONGENITAL RENAL CYST [None]
  - HYDROCEPHALUS [None]
  - OPTIC NERVE HYPOPLASIA [None]
  - CONGENITAL GENITOURINARY ABNORMALITY [None]
  - CAESAREAN SECTION [None]
  - CONGENITAL CYSTIC KIDNEY DISEASE [None]
  - PECTUS EXCAVATUM [None]
  - EBSTEIN'S ANOMALY [None]
  - HYDRONEPHROSIS [None]
  - CRANIOSYNOSTOSIS [None]
  - ATRIAL SEPTAL DEFECT [None]
  - LIMB MALFORMATION [None]
  - MATERNAL DRUGS AFFECTING FOETUS [None]
  - LOW SET EARS [None]
  - NEURAL TUBE DEFECT [None]
  - RENAL HYPOPLASIA [None]
  - FOETAL ANTICONVULSANT SYNDROME [None]
  - CAMPTODACTYLY CONGENITAL [None]
  - CARDIAC MALPOSITION [None]
  - TERATOGENICITY [None]
